FAERS Safety Report 8920603 (Version 1)
Quarter: 2012Q4

REPORT INFORMATION
  Report Type: 
  Country: JP (occurrence: JP)
  Receive Date: 20121122
  Receipt Date: 20121122
  Transmission Date: 20130627
  Serious: Yes (Hospitalization, Other)
  Sender: FDA-Public Use
  Company Number: JP-009507513-2012SP010640

PATIENT
  Age: 59 Year
  Sex: Female
  Weight: 43 kg

DRUGS (18)
  1. PEGINTERFERON ALFA-2B [Suspect]
     Indication: HEPATITIS C
     Dosage: 1.5 microgram per kilogram, QW
     Route: 058
     Dates: start: 20120209, end: 20120215
  2. PEGINTERFERON ALFA-2B [Suspect]
     Dosage: 1.5 microgram per kilogram, QW
     Route: 058
     Dates: start: 20120224
  3. PEGINTERFERON ALFA-2B [Suspect]
     Dosage: 1.25 Microgram per kilogram, qw
     Route: 058
     Dates: end: 20120506
  4. PEGINTERFERON ALFA-2B [Suspect]
     Dosage: 1.5 microgram per kilogram, qw
     Route: 058
     Dates: start: 20120507, end: 20120716
  5. PEGINTERFERON ALFA-2B [Suspect]
     Dosage: 1.25 microgram per kilogram, qw
     Route: 058
     Dates: start: 20120717, end: 20120722
  6. PEGINTERFERON ALFA-2B [Suspect]
     Dosage: 1.5 microgram per kilogram, qw
     Route: 058
     Dates: start: 20120723
  7. REBETOL [Suspect]
     Indication: HEPATITIS C
     Dosage: 400 mg, QD
     Route: 048
     Dates: start: 20120209, end: 20120215
  8. REBETOL [Suspect]
     Dosage: 400 mg, QD
     Route: 048
     Dates: start: 20120224, end: 20120318
  9. REBETOL [Suspect]
     Dosage: 200 mg, qd
     Route: 048
     Dates: start: 20120319, end: 20120422
  10. REBETOL [Suspect]
     Dosage: 300 mg, qd
     Route: 048
     Dates: start: 20120423, end: 20120701
  11. REBETOL [Suspect]
     Dosage: 400 mg, qd
     Route: 048
     Dates: start: 20120702, end: 20120722
  12. REBETOL [Suspect]
     Dosage: 200 mg, qd
     Route: 048
     Dates: start: 20120723
  13. TELAVIC [Suspect]
     Indication: HEPATITIS C
     Dosage: 2250 mg, QD
     Route: 048
     Dates: start: 20120209, end: 20120215
  14. LOXONIN [Concomitant]
     Indication: PROPHYLAXIS
     Dosage: 60 mg, PRN
     Route: 048
     Dates: start: 20120209, end: 20120211
  15. CYTOTEC [Concomitant]
     Indication: PROPHYLAXIS
     Dosage: 100 microgram, PRN
     Route: 048
     Dates: start: 20120209, end: 20120211
  16. CYTOTEC [Concomitant]
     Dosage: UNK
  17. LENDORMIN [Concomitant]
     Indication: INSOMNIA
     Dosage: 0.25 mg, qd
     Route: 048
  18. PREDONINE [Concomitant]
     Indication: PRURITUS
     Dosage: UPDATE (26APR2012)
     Route: 048

REACTIONS (5)
  - Drug eruption [Recovering/Resolving]
  - Insomnia [Recovered/Resolved]
  - Rash [Not Recovered/Not Resolved]
  - Depression [Not Recovered/Not Resolved]
  - Depression [Recovered/Resolved]
